FAERS Safety Report 18609135 (Version 1)
Quarter: 2020Q4

REPORT INFORMATION
  Report Type: Spontaneous
  Country: JP (occurrence: JP)
  Receive Date: 20201214
  Receipt Date: 20201214
  Transmission Date: 20210114
  Serious: No
  Sender: FDA-Public Use
  Company Number: JP-ALKEM LABORATORIES LIMITED-JP-ALKEM-2020-07703

PATIENT
  Age: 58 Year
  Sex: Female

DRUGS (2)
  1. CINACALCET. [Suspect]
     Active Substance: CINACALCET
     Dosage: 50 MILLIGRAM
     Route: 065
  2. CINACALCET. [Suspect]
     Active Substance: CINACALCET
     Indication: PERITONEAL DIALYSIS
     Dosage: 25 MILLIGRAM
     Route: 065

REACTIONS (3)
  - Hypercalcaemia [Recovered/Resolved]
  - Drug level decreased [Recovered/Resolved]
  - Blood alkaline phosphatase increased [Recovered/Resolved]
